FAERS Safety Report 5640450-9 (Version None)
Quarter: 2008Q1

REPORT INFORMATION
  Report Type: 
  Country: None (occurrence: None)
  Receive Date: 20080225
  Receipt Date: 20080220
  Transmission Date: 20080703
  Serious: Yes (Death, Hospitalization, Other)
  Sender: FDA-Public Use
  Company Number: TCI2008A00128

PATIENT
  Age: 79 Year
  Sex: Male

DRUGS (10)
  1. LEUPROLIDE ACETATE [Suspect]
     Indication: PROSTATE CANCER
     Dosage: 11.25 MG (11.25 MG,  1 IN 12 WK) SUBCUTANEOUS
     Route: 058
     Dates: start: 20071213, end: 20071213
  2. CASODEX [Suspect]
     Dosage: 80 MG (80 MG, 1 IN 1 D) PER ORAL
     Route: 048
     Dates: start: 20071210, end: 20080107
  3. PIROAN (DIPYRIDAMOLE) [Concomitant]
  4. BUFFERIN (BUFFERIN /01519201/) [Concomitant]
  5. NEUQUINON (UBIDECARENONE) [Concomitant]
  6. ACTOSIN (BUCLADESINE SODIUM) [Concomitant]
  7. TANATRIL (IMIDAPRIL HYDROCHLORIDE) [Concomitant]
  8. VASTAREL F (TRIMETAZIDINE HYDROCHLORIDE) [Concomitant]
  9. LOXONIN (LOXOPROFEN SODIUM) [Concomitant]
  10. MUCOSTA (REBAMIPIDE) [Concomitant]

REACTIONS (12)
  - ANOREXIA [None]
  - COMPUTERISED TOMOGRAM ABNORMAL [None]
  - COUGH [None]
  - DYSPNOEA [None]
  - INTERSTITIAL LUNG DISEASE [None]
  - MALAISE [None]
  - PNEUMOCYSTIS JIROVECI PNEUMONIA [None]
  - PRODUCTIVE COUGH [None]
  - PSEUDOMONAS INFECTION [None]
  - PYREXIA [None]
  - RESPIRATORY FAILURE [None]
  - SURFACTANT PROTEIN INCREASED [None]
